FAERS Safety Report 7640617-4 (Version None)
Quarter: 2011Q3

REPORT INFORMATION
  Report Type: 
  Country: None (occurrence: None)
  Receive Date: 20110728
  Receipt Date: 20110720
  Transmission Date: 20111222
  Serious: Yes (Other)
  Sender: FDA-Public Use
  Company Number: US-ASTRAZENECA-2006UW23375

PATIENT
  Age: 51 Year
  Sex: Male
  Weight: 93.4 kg

DRUGS (17)
  1. SEROQUEL [Suspect]
     Dosage: 300MG TO 800 MG
     Route: 048
     Dates: start: 20021213, end: 20030819
  2. HYDROXYZINE HCL [Concomitant]
     Indication: ANXIETY
     Route: 048
     Dates: start: 20050822
  3. LOXAPINE SUCCINATE [Concomitant]
     Route: 048
     Dates: start: 20030101
  4. SEROQUEL [Suspect]
     Indication: DEPRESSION
     Dosage: 100 MG-200 MG
     Route: 048
     Dates: start: 19970101, end: 20010101
  5. RISPERDAL [Concomitant]
     Dates: end: 19970101
  6. CLOZAPINE [Concomitant]
     Dates: end: 20010101
  7. GLIPIZIDE [Concomitant]
     Dosage: 5 MG, 4 TABLET, TWICE A DAY
     Route: 048
     Dates: start: 20021213
  8. SEROQUEL [Suspect]
     Dosage: 300MG TO 800 MG
     Route: 048
     Dates: start: 20021213, end: 20030819
  9. REMERON [Concomitant]
     Route: 048
     Dates: start: 20021213
  10. SEROQUEL [Suspect]
     Indication: SCHIZOPHRENIA
     Dosage: 100 MG-200 MG
     Route: 048
     Dates: start: 19970101, end: 20010101
  11. GEODON [Concomitant]
     Route: 048
     Dates: start: 20021213
  12. GEODON [Concomitant]
     Dates: end: 19990101
  13. THORAZINE [Concomitant]
     Dates: end: 19970101
  14. ZOLOFT [Concomitant]
     Dates: end: 19940101
  15. ZYPREXA [Concomitant]
     Dates: end: 19970101
  16. PRINIVIL [Concomitant]
     Route: 048
     Dates: start: 20021213
  17. LIPITOR [Concomitant]
     Route: 048
     Dates: start: 20021213

REACTIONS (12)
  - OBESITY [None]
  - HYPOGLYCAEMIA [None]
  - PROSTATITIS [None]
  - TYPE 2 DIABETES MELLITUS [None]
  - ANKLE FRACTURE [None]
  - JOINT INJURY [None]
  - NEUROPATHY PERIPHERAL [None]
  - DIABETIC NEUROPATHY [None]
  - ADVERSE DRUG REACTION [None]
  - HYPERTENSION [None]
  - BACK PAIN [None]
  - VITAMIN B12 DEFICIENCY [None]
